FAERS Safety Report 4870340-0 (Version None)
Quarter: 2005Q4

REPORT INFORMATION
  Report Type: 
  Country: None (occurrence: None)
  Receive Date: 20051228
  Receipt Date: 20051214
  Transmission Date: 20060501
  Serious: Yes (Hospitalization)
  Sender: FDA-Public Use
  Company Number: 2005-US-01421

PATIENT
  Age: 57 Year
  Sex: Female

DRUGS (2)
  1. CLOZAPINE [Suspect]
     Indication: BIPOLAR DISORDER
     Dosage: 50 MG, QD, ORAL
     Route: 048
     Dates: start: 20020101
  2. CLOZAPINE [Suspect]
     Indication: OBSESSIVE-COMPULSIVE DISORDER
     Dosage: 50 MG, QD, ORAL
     Route: 048
     Dates: start: 20020101

REACTIONS (2)
  - GASTRIC BYPASS [None]
  - HYPOKALAEMIA [None]
